FAERS Safety Report 21092168 (Version 1)
Quarter: 2022Q3

REPORT INFORMATION
  Report Type: Report from Study
  Country: US (occurrence: US)
  Receive Date: 20220718
  Receipt Date: 20220718
  Transmission Date: 20221027
  Serious: No
  Sender: FDA-Public Use
  Company Number: US-BIOVITRUM-2022US04610

PATIENT
  Age: 61 Year
  Sex: Female

DRUGS (2)
  1. KINERET [Suspect]
     Active Substance: ANAKINRA
     Indication: Rheumatoid arthritis
     Dates: start: 20220214
  2. KINERET [Suspect]
     Active Substance: ANAKINRA
     Dates: start: 20220316

REACTIONS (4)
  - Sinusitis [Unknown]
  - Paranasal sinus hypersecretion [Unknown]
  - Drug ineffective [Unknown]
  - Product dose omission issue [Unknown]

NARRATIVE: CASE EVENT DATE: 20220330
